FAERS Safety Report 7379602-9 (Version None)
Quarter: 2011Q1

REPORT INFORMATION
  Report Type: 
  Country: None (occurrence: None)
  Receive Date: 20110318
  Receipt Date: 20110228
  Transmission Date: 20110831
  Serious: Yes (Other)
  Sender: FDA-Public Use
  Company Number: ACO_21965_2011

PATIENT
  Age: 37 Year
  Sex: Female
  Weight: 65.8 kg

DRUGS (2)
  1. AMPYRA [Suspect]
     Indication: GAIT DISTURBANCE
     Dosage: 10 MG, BID, ORAL
     Route: 048
     Dates: start: 20100901, end: 20100901
  2. COPAXONE [Concomitant]

REACTIONS (1)
  - DRUG HYPERSENSITIVITY [None]
